FAERS Safety Report 13195961 (Version 1)
Quarter: 2017Q1

REPORT INFORMATION
  Report Type: Spontaneous
  Country: US (occurrence: US)
  Receive Date: 20170208
  Receipt Date: 20170208
  Transmission Date: 20170428
  Serious: Yes (Hospitalization)
  Sender: FDA-Public Use
  Company Number: US-ROCHE-1890709

PATIENT
  Age: 80 Year
  Sex: Female
  Weight: 62.5 kg

DRUGS (3)
  1. ACTIVASE [Suspect]
     Active Substance: ALTEPLASE
     Indication: CEREBROVASCULAR ACCIDENT
     Dosage: ONE TIME BOLUS DOSE OVER 1 MINUTE GIVEN AT 1233 ;ONGOING: NO
     Route: 040
     Dates: start: 20170204, end: 20170204
  2. ACTIVASE [Suspect]
     Active Substance: ALTEPLASE
     Dosage: ONE TIME INFUSION DOSE OVER 1 HOUR STARTED AT 1234 ;ONGOING: NO
     Route: 041
     Dates: start: 20170204, end: 20170204
  3. LISINOPRIL. [Suspect]
     Active Substance: LISINOPRIL
     Indication: HYPERTENSION
     Dosage: NO
     Route: 065

REACTIONS (2)
  - Lip swelling [Recovered/Resolved]
  - Drug hypersensitivity [Not Recovered/Not Resolved]

NARRATIVE: CASE EVENT DATE: 20170204
